FAERS Safety Report 7049091-2 (Version None)
Quarter: 2010Q4

REPORT INFORMATION
  Report Type: 
  Country: None (occurrence: None)
  Receive Date: 20101018
  Receipt Date: 20101007
  Transmission Date: 20110411
  Serious: No
  Sender: FDA-Public Use
  Company Number: US-ROXANE LABORATORIES, INC.-2010-RO-01337RO

PATIENT
  Sex: Female

DRUGS (2)
  1. PREDNISONE [Suspect]
  2. LEVAQUIN [Suspect]

REACTIONS (2)
  - MONOPLEGIA [None]
  - TENDON RUPTURE [None]
